FAERS Safety Report 21257423 (Version 1)
Quarter: 2022Q3

REPORT INFORMATION
  Report Type: Spontaneous
  Country: DE (occurrence: DE)
  Receive Date: 20220826
  Receipt Date: 20220826
  Transmission Date: 20221027
  Serious: Yes (Other)
  Sender: FDA-Public Use
  Company Number: DE-SANOFI-01200526

PATIENT
  Age: 37 Year
  Sex: Female
  Weight: 72 kg

DRUGS (2)
  1. AUBAGIO [Suspect]
     Active Substance: TERIFLUNOMIDE
     Indication: Multiple sclerosis
     Dosage: 1 DF, UNK
     Dates: start: 202201
  2. PARACODIN [DIHYDROCODEINE BITARTRATE] [Concomitant]
     Active Substance: DIHYDROCODEINE BITARTRATE

REACTIONS (6)
  - Lymphoma [Unknown]
  - Pneumonia [Unknown]
  - Lymphadenopathy [Unknown]
  - Dyspnoea [Unknown]
  - Cough [Unknown]
  - COVID-19 [Unknown]

NARRATIVE: CASE EVENT DATE: 20220101
